FAERS Safety Report 7370617-3 (Version None)
Quarter: 2011Q1

REPORT INFORMATION
  Report Type: 
  Country: None (occurrence: None)
  Receive Date: 20110323
  Receipt Date: 20110310
  Transmission Date: 20110831
  Serious: Yes (Other)
  Sender: FDA-Public Use
  Company Number: ES-AMGEN-ESPCT2011010030

PATIENT

DRUGS (1)
  1. CINACALCET HYDROCHLORIDE [Suspect]
     Indication: HYPERPARATHYROIDISM PRIMARY
     Dosage: 30 MG, QD

REACTIONS (3)
  - DIZZINESS [None]
  - PARAESTHESIA [None]
  - ASTHENIA [None]
